FAERS Safety Report 5202394-6 (Version None)
Quarter: 2006Q4

REPORT INFORMATION
  Report Type: 
  Country: None (occurrence: None)
  Receive Date: 20061012
  Receipt Date: 20060727
  Transmission Date: 20070319
  Serious: No
  Sender: FDA-Public Use
  Company Number: 2006S1000144

PATIENT
  Age: 77 Year
  Sex: Male

DRUGS (4)
  1. CUBICIN [Suspect]
     Indication: DEVICE RELATED INFECTION
     Dates: start: 20060613, end: 20060701
  2. CUBICIN [Suspect]
     Indication: ENDOCARDITIS
     Dates: start: 20060613, end: 20060701
  3. WARFARIN SODIUM [Concomitant]
  4. RIFAMPIN [Concomitant]

REACTIONS (4)
  - ALDOLASE INCREASED [None]
  - BLOOD CREATINE PHOSPHOKINASE INCREASED [None]
  - INTERNATIONAL NORMALISED RATIO INCREASED [None]
  - PROTHROMBIN TIME PROLONGED [None]
